FAERS Safety Report 9388830 (Version 4)
Quarter: 2013Q3

REPORT INFORMATION
  Report Type: Report from Study
  Country: US (occurrence: US)
  Receive Date: 20130708
  Receipt Date: 20130906
  Transmission Date: 20140515
  Serious: Yes (Hospitalization, Other)
  Sender: FDA-Public Use
  Company Number: US-ABBOTT-13P-163-1113149-00

PATIENT
  Age: 66 Year
  Sex: Female

DRUGS (3)
  1. HUMIRA [Suspect]
     Indication: RHEUMATOID ARTHRITIS
  2. HUMIRA [Suspect]
  3. UNKNOWN MEDICATIONS [Concomitant]
     Indication: PRODUCT USED FOR UNKNOWN INDICATION

REACTIONS (13)
  - Abasia [Unknown]
  - Wound [Unknown]
  - Impaired healing [Unknown]
  - Arthralgia [Unknown]
  - Dyspnoea [Unknown]
  - Arthralgia [Unknown]
  - Gait disturbance [Unknown]
  - Blood glucose decreased [Unknown]
  - Arthropathy [Unknown]
  - Blister [Unknown]
  - Erythema [Unknown]
  - Lower respiratory tract infection [Unknown]
  - Dyspnoea [Unknown]
